FAERS Safety Report 16614788 (Version 2)
Quarter: 2019Q3

REPORT INFORMATION
  Report Type: Spontaneous
  Country: US (occurrence: US)
  Receive Date: 20190723
  Receipt Date: 20190829
  Transmission Date: 20191004
  Serious: No
  Sender: FDA-Public Use
  Company Number: US-B.I. PHARMACEUTICALS,INC./RIDGEFIELD-2019-US-000636

PATIENT
  Age: 70 Year

DRUGS (1)
  1. COMBIVENT [Suspect]
     Active Substance: ALBUTEROL SULFATE\IPRATROPIUM BROMIDE
     Indication: INFLUENZA
     Dosage: 2-3 PUFFS DAILY
     Route: 065
     Dates: start: 201811

REACTIONS (3)
  - Product quality issue [Unknown]
  - Off label use [Unknown]
  - Lower respiratory tract congestion [Not Recovered/Not Resolved]

NARRATIVE: CASE EVENT DATE: 201811
